FAERS Safety Report 14668158 (Version 1)
Quarter: 2018Q1

REPORT INFORMATION
  Report Type: Spontaneous
  Country: US (occurrence: US)
  Receive Date: 20180322
  Receipt Date: 20180322
  Transmission Date: 20180509
  Serious: Yes (Death)
  Sender: FDA-Public Use
  Company Number: US-ROCHE-2092201

PATIENT
  Sex: Male

DRUGS (1)
  1. ESBRIET [Suspect]
     Active Substance: PIRFENIDONE
     Indication: PULMONARY HYPERTENSION
     Route: 048

REACTIONS (3)
  - Intentional product use issue [Unknown]
  - Off label use [Unknown]
  - Death [Fatal]

NARRATIVE: CASE EVENT DATE: 20180309
